FAERS Safety Report 11079195 (Version 1)
Quarter: 2015Q2

REPORT INFORMATION
  Report Type: Spontaneous
  Country: US (occurrence: US)
  Receive Date: 20150430
  Receipt Date: 20150430
  Transmission Date: 20150821
  Serious: No
  Sender: FDA-Public Use
  Company Number: US-009507513-1504USA022720

PATIENT
  Age: 18 Year
  Sex: Female

DRUGS (2)
  1. NEXPLANON [Suspect]
     Active Substance: ETONOGESTREL
     Indication: CONTRACEPTION
     Dosage: 68MG/1 ROD PER 3 YEARS
     Route: 059
     Dates: start: 20150406, end: 20150406
  2. NEXPLANON [Suspect]
     Active Substance: ETONOGESTREL
     Dosage: 68MG/1 ROD PER 3 YEARS
     Route: 059
     Dates: start: 20150406

REACTIONS (3)
  - No adverse event [Unknown]
  - Product quality issue [Unknown]
  - Device difficult to use [Recovered/Resolved]

NARRATIVE: CASE EVENT DATE: 20150406
